FAERS Safety Report 23053247 (Version 1)
Quarter: 2023Q4

REPORT INFORMATION
  Report Type: Spontaneous
  Country: DE (occurrence: DE)
  Receive Date: 20231011
  Receipt Date: 20231011
  Transmission Date: 20240110
  Serious: Yes (Hospitalization)
  Sender: FDA-Public Use
  Company Number: None

PATIENT
  Age: 91 Year
  Sex: Male

DRUGS (2)
  1. LINEZOLID [Suspect]
     Active Substance: LINEZOLID
     Indication: Intervertebral discitis
     Dosage: 600 MILLIGRAM, BID (EVERY 12 HOUR)
     Route: 042
     Dates: start: 20230814, end: 20230816
  2. LINEZOLID [Suspect]
     Active Substance: LINEZOLID
     Dosage: UNK
     Route: 065

REACTIONS (2)
  - Bloody discharge [Unknown]
  - Erythema [Unknown]

NARRATIVE: CASE EVENT DATE: 20230815
